FAERS Safety Report 8119233-6 (Version None)
Quarter: 2012Q1

REPORT INFORMATION
  Report Type: 
  Country: None (occurrence: None)
  Receive Date: 20120207
  Receipt Date: 20120131
  Transmission Date: 20120608
  Serious: Yes (Death, Hospitalization)
  Sender: FDA-Public Use
  Company Number: JP-BAYER-2011-070290

PATIENT
  Age: 62 Year
  Sex: Male
  Weight: 65 kg

DRUGS (7)
  1. NEXAVAR [Suspect]
     Dosage: 800 MG, UNK
     Route: 048
     Dates: start: 20110627, end: 20110731
  2. MOTILIUM [Concomitant]
     Dosage: 30 MG, UNK
     Route: 048
  3. RABEPRAZOLE SODIUM [Concomitant]
     Dosage: 20 MG, UNK
     Route: 048
  4. PYDOXAL [Concomitant]
     Dosage: 90 MG, UNK
     Route: 048
  5. URSO 250 [Concomitant]
     Dosage: 1800 MG, UNK
     Route: 048
  6. NEXAVAR [Suspect]
     Indication: HEPATIC NEOPLASM MALIGNANT
     Dosage: 400 MG, QD
     Route: 048
     Dates: start: 20110613, end: 20110626
  7. NORVASC [Concomitant]
     Route: 048

REACTIONS (4)
  - GASTROENTERITIS RADIATION [None]
  - HAEMATOCHEZIA [None]
  - HEPATIC NEOPLASM MALIGNANT [None]
  - FAECES DISCOLOURED [None]
